FAERS Safety Report 9688324 (Version 6)
Quarter: 2020Q2

REPORT INFORMATION
  Report Type: Report from Study
  Country: US (occurrence: US)
  Receive Date: 20131114
  Receipt Date: 20200403
  Transmission Date: 20200714
  Serious: Yes (Hospitalization, Other)
  Sender: FDA-Public Use
  Company Number: US-SA-2013SA115678

PATIENT
  Age: 35 Year
  Sex: Female

DRUGS (5)
  1. TERIFLUNOMIDE. [Suspect]
     Active Substance: TERIFLUNOMIDE
     Dosage: 14 MG,QD
     Route: 048
  2. TERIFLUNOMIDE. [Suspect]
     Active Substance: TERIFLUNOMIDE
     Indication: MULTIPLE SCLEROSIS
     Dosage: 14 MG,QD
     Route: 048
     Dates: start: 20130409
  3. TERIFLUNOMIDE. [Suspect]
     Active Substance: TERIFLUNOMIDE
     Dosage: 14 MG, QD
     Route: 048
     Dates: start: 20140407
  4. TERIFLUNOMIDE. [Suspect]
     Active Substance: TERIFLUNOMIDE
     Dosage: 14 MG,QD
     Route: 048
  5. TERIFLUNOMIDE. [Suspect]
     Active Substance: TERIFLUNOMIDE
     Dosage: 14 MG, QD
     Route: 048
     Dates: start: 20150713

REACTIONS (14)
  - Fatigue [Unknown]
  - Unevaluable event [Unknown]
  - Migraine [Unknown]
  - Spinal cord injury [Unknown]
  - Nasopharyngitis [Unknown]
  - Muscle disorder [Unknown]
  - Gastric operation [Unknown]
  - Chest pain [Recovered/Resolved]
  - Product dose omission [Unknown]
  - Arthropathy [Unknown]
  - Limb discomfort [Unknown]
  - Multiple sclerosis relapse [Recovered/Resolved]
  - Pharyngeal operation [Unknown]
  - Bone disorder [Unknown]

NARRATIVE: CASE EVENT DATE: 201309
